FAERS Safety Report 9744882 (Version 2)
Quarter: 2013Q4

REPORT INFORMATION
  Report Type: Spontaneous
  Country: AU (occurrence: AU)
  Receive Date: 20131211
  Receipt Date: 20131211
  Transmission Date: 20140711
  Serious: Yes (Other)
  Sender: FDA-Public Use
  Company Number: AU-AMGEN-AUSSP2013082809

PATIENT
  Age: 77 Year
  Sex: Female

DRUGS (1)
  1. PROLIA [Suspect]
     Indication: PRODUCT USED FOR UNKNOWN INDICATION
     Dosage: UNK
     Route: 065

REACTIONS (23)
  - Walking aid user [Unknown]
  - Myocardial infarction [Unknown]
  - Kidney infection [Not Recovered/Not Resolved]
  - Eating disorder [Unknown]
  - Vision blurred [Unknown]
  - Peripheral coldness [Unknown]
  - Cold sweat [Unknown]
  - Feeling hot [Unknown]
  - Throat tightness [Unknown]
  - Dry throat [Unknown]
  - Nasal congestion [Unknown]
  - Bone disorder [Unknown]
  - Sleep disorder [Unknown]
  - Eye pruritus [Unknown]
  - Pruritus [Unknown]
  - Arthralgia [Not Recovered/Not Resolved]
  - Pain in extremity [Not Recovered/Not Resolved]
  - Vision blurred [Not Recovered/Not Resolved]
  - Pain [Not Recovered/Not Resolved]
  - Dyspnoea [Unknown]
  - Back pain [Not Recovered/Not Resolved]
  - Drug hypersensitivity [Unknown]
  - Rash [Not Recovered/Not Resolved]
